FAERS Safety Report 21936321 (Version 1)
Quarter: 2023Q1

REPORT INFORMATION
  Report Type: Spontaneous
  Country: US (occurrence: None)
  Receive Date: 20230127
  Receipt Date: 20230127
  Transmission Date: 20230418
  Serious: Yes (unspecified)
  Sender: FDA-Public Use
  Company Number: None

PATIENT
  Age: 34 Year
  Sex: Male
  Weight: 96.75 kg

DRUGS (1)
  1. EPINEPHRINE\LIDOCAINE\TETRACAINE [Suspect]
     Active Substance: EPINEPHRINE\LIDOCAINE\TETRACAINE
     Indication: Drug therapy
     Dates: start: 20230109

REACTIONS (2)
  - Feeling abnormal [None]
  - Pallor [None]

NARRATIVE: CASE EVENT DATE: 20230109
